FAERS Safety Report 25767435 (Version 1)
Quarter: 2025Q3

REPORT INFORMATION
  Report Type: Spontaneous
  Country: US (occurrence: US)
  Receive Date: 20250905
  Receipt Date: 20250905
  Transmission Date: 20251020
  Serious: Yes (Other)
  Sender: TEVA
  Company Number: US-TEVA-VS-3368034

PATIENT

DRUGS (3)
  1. AMPHETAMINE SULFATE\DEXTROAMPHETAMINE [Suspect]
     Active Substance: AMPHETAMINE SULFATE\DEXTROAMPHETAMINE
     Indication: Attention deficit hyperactivity disorder
     Route: 065
     Dates: start: 2025
  2. AMPHETAMINE SULFATE\DEXTROAMPHETAMINE [Suspect]
     Active Substance: AMPHETAMINE SULFATE\DEXTROAMPHETAMINE
     Indication: Attention deficit hyperactivity disorder
     Route: 065
     Dates: start: 202506
  3. AMPHETAMINE SULFATE\DEXTROAMPHETAMINE [Suspect]
     Active Substance: AMPHETAMINE SULFATE\DEXTROAMPHETAMINE
     Indication: Attention deficit hyperactivity disorder
     Route: 065

REACTIONS (16)
  - Attention deficit hyperactivity disorder [Unknown]
  - Drug ineffective [Unknown]
  - Aphasia [Unknown]
  - Therapeutic product effect incomplete [Unknown]
  - Memory impairment [Unknown]
  - Fatigue [Unknown]
  - Loss of personal independence in daily activities [Unknown]
  - Tension headache [Unknown]
  - Hypomania [Unknown]
  - Dizziness [Unknown]
  - Dissociation [Unknown]
  - Brain fog [Unknown]
  - Product dose omission in error [Unknown]
  - Drug tolerance [Unknown]
  - Feeling abnormal [Unknown]
  - Speech disorder [Unknown]

NARRATIVE: CASE EVENT DATE: 20250101
